FAERS Safety Report 19197852 (Version 1)
Quarter: 2021Q2

REPORT INFORMATION
  Report Type: Spontaneous
  Country: US (occurrence: US)
  Receive Date: 20210429
  Receipt Date: 20210429
  Transmission Date: 20210717
  Serious: Yes (Other)
  Sender: FDA-Public Use
  Company Number: US-ALLERGAN-2116375US

PATIENT
  Sex: Male

DRUGS (7)
  1. ATENOLOL. [Concomitant]
     Active Substance: ATENOLOL
     Dosage: 25 MG DAY
  2. VIIBRYD [Suspect]
     Active Substance: VILAZODONE HYDROCHLORIDE
     Dosage: 40 MG, QD
     Route: 048
  3. SPIRONOLACTONE. [Concomitant]
     Active Substance: SPIRONOLACTONE
     Dosage: 25 MG
  4. ASPIRIN. [Concomitant]
     Active Substance: ASPIRIN
     Dosage: 81 MG
  5. VIIBRYD [Suspect]
     Active Substance: VILAZODONE HYDROCHLORIDE
     Indication: MAJOR DEPRESSION
     Dosage: 40 MG, QD
     Route: 048
  6. VIIBRYD [Suspect]
     Active Substance: VILAZODONE HYDROCHLORIDE
     Dosage: 30 MG
     Route: 048
  7. ENALAPRIL [Concomitant]
     Active Substance: ENALAPRIL
     Dosage: 10 MG

REACTIONS (6)
  - Product dose omission issue [Unknown]
  - Depression [Unknown]
  - Electric shock sensation [Unknown]
  - Nervousness [Unknown]
  - Cardiac disorder [Unknown]
  - Anxiety [Unknown]

NARRATIVE: CASE EVENT DATE: 2021
